FAERS Safety Report 5174694-X (Version None)
Quarter: 2006Q4

REPORT INFORMATION
  Report Type: 
  Country: None (occurrence: None)
  Receive Date: 20061214
  Receipt Date: 20060613
  Transmission Date: 20070319
  Serious: No
  Sender: FDA-Public Use
  Company Number: US-AMGEN-KDL182753

PATIENT
  Sex: Female

DRUGS (4)
  1. ENBREL [Suspect]
     Indication: RHEUMATOID ARTHRITIS
     Route: 058
     Dates: start: 20051101, end: 20060519
  2. REMICADE [Concomitant]
     Dates: start: 20060607
  3. METHOTREXATE [Concomitant]
     Route: 048
     Dates: start: 20040101
  4. PLAQUENIL [Concomitant]
     Route: 048
     Dates: start: 20040101

REACTIONS (4)
  - ANOREXIA [None]
  - ARTHRALGIA [None]
  - LOSS OF CONSCIOUSNESS [None]
  - VOMITING [None]
